FAERS Safety Report 5862024-7 (Version None)
Quarter: 2008Q3

REPORT INFORMATION
  Report Type: 
  Country: None (occurrence: None)
  Receive Date: 20080827
  Receipt Date: 20071204
  Transmission Date: 20090109
  Serious: No
  Sender: FDA-Public Use
  Company Number: US-ABBOTT-07P-163-0427415-00

PATIENT
  Age: 66 Year
  Sex: Female
  Weight: 90.9 kg

DRUGS (3)
  1. NIASPAN [Suspect]
     Indication: BLOOD CHOLESTEROL INCREASED
     Route: 048
     Dates: start: 20070801, end: 20071101
  2. NIASPAN [Suspect]
     Route: 048
     Dates: start: 20071101
  3. CANDESARTAN CILEXETIL [Concomitant]
     Indication: HYPERTENSION
     Route: 048

REACTIONS (2)
  - FEELING HOT [None]
  - HEPATIC ENZYME INCREASED [None]
